FAERS Safety Report 22911912 (Version 6)
Quarter: 2024Q4

REPORT INFORMATION
  Report Type: Spontaneous
  Country: US (occurrence: US)
  Receive Date: 20230906
  Receipt Date: 20241218
  Transmission Date: 20250115
  Serious: No
  Sender: PFIZER
  Company Number: US-PFIZER INC-PV202300150182

PATIENT
  Age: 60 Year
  Sex: Female
  Weight: 112.65 kg

DRUGS (3)
  1. BOSULIF [Suspect]
     Active Substance: BOSUTINIB MONOHYDRATE
     Indication: Philadelphia positive chronic myeloid leukaemia
     Dosage: 400 MG, DAILY (TAKE ONE TABLET DAILY)
     Route: 048
  2. BOSULIF [Suspect]
     Active Substance: BOSUTINIB MONOHYDRATE
     Dosage: 400 MG, DAILY (TAKE 100 MG 4 TABS DAILY)
     Route: 048
  3. BOSULIF [Suspect]
     Active Substance: BOSUTINIB MONOHYDRATE
     Dosage: 400 MG, 1X/DAY (TAKE 100 MG 4 TABLETS ONCE DAILY)
     Route: 048

REACTIONS (9)
  - Throat irritation [Unknown]
  - Decreased appetite [Unknown]
  - Eye pruritus [Unknown]
  - Sputum discoloured [Unknown]
  - Lacrimation increased [Unknown]
  - Arthralgia [Recovering/Resolving]
  - Dizziness [Unknown]
  - Peripheral swelling [Unknown]
  - Fatigue [Unknown]

NARRATIVE: CASE EVENT DATE: 20240101
